FAERS Safety Report 15682144 (Version 1)
Quarter: 2018Q4

REPORT INFORMATION
  Report Type: Spontaneous
  Country: US (occurrence: US)
  Receive Date: 20181203
  Receipt Date: 20181203
  Transmission Date: 20190205
  Serious: No
  Sender: FDA-Public Use
  Company Number: US-TEVA-2018-US-981628

PATIENT
  Age: 56 Year
  Sex: Female

DRUGS (1)
  1. CLONAZEPAM TABLETS [Suspect]
     Active Substance: CLONAZEPAM
     Indication: SLEEP DISORDER
     Dosage: .5 MILLIGRAM DAILY; IN HALF TO TAKE 0.5 MG EVERY NIGHT AT BEDTIME
     Route: 065
     Dates: start: 2016

REACTIONS (4)
  - Wrong technique in product usage process [Unknown]
  - Headache [Unknown]
  - Feeling abnormal [Unknown]
  - Poor quality sleep [Unknown]
